FAERS Safety Report 18375456 (Version 1)
Quarter: 2020Q4

REPORT INFORMATION
  Report Type: Spontaneous
  Country: US (occurrence: US)
  Receive Date: 20201012
  Receipt Date: 20201012
  Transmission Date: 20210114
  Serious: Yes (Other)
  Sender: FDA-Public Use
  Company Number: None

PATIENT
  Age: 83 Year
  Sex: Female
  Weight: 84.5 kg

DRUGS (14)
  1. MIDAZOLAM 1MG INJECTION [Concomitant]
     Dates: start: 20200524, end: 20200524
  2. FAMOTIDINE 20 MG [Concomitant]
     Active Substance: FAMOTIDINE
     Dates: start: 20200524, end: 20200608
  3. CLOPIDOGREL 600 MG [Concomitant]
     Dates: start: 20200524, end: 20200524
  4. DILAUDID INFUSION [Concomitant]
     Dates: start: 20200524, end: 20200611
  5. REMDESIVIR. [Suspect]
     Active Substance: REMDESIVIR
     Indication: COVID-19
     Dates: start: 20200524, end: 20200528
  6. MIDAZOLAM 2 MG INJECTION [Concomitant]
     Dates: start: 20200524, end: 20200524
  7. ASPIRIN 81 MG [Concomitant]
     Active Substance: ASPIRIN
     Dates: start: 20200524, end: 20200524
  8. DILAUDID 0.5-1 MG PRN [Concomitant]
     Dates: start: 20200524, end: 20200611
  9. NOREPINEPHRINE CONTINUOUS IV [Concomitant]
     Dates: start: 20200523, end: 20200601
  10. VALPROIC ACID 250 MG Q8H [Concomitant]
     Dates: start: 20200526, end: 20200602
  11. DUO-NEB 0.35-2.5MG/3ML [Concomitant]
     Dates: start: 20200524, end: 20200524
  12. ATORVASTATIN 80 MG [Concomitant]
     Active Substance: ATORVASTATIN
     Dates: start: 20200524, end: 20200524
  13. ENOXAPARIN 40 MG SQ [Concomitant]
     Dates: start: 20200524, end: 20200531
  14. MIDAZOLAM INFUSION [Concomitant]
     Active Substance: MIDAZOLAM HYDROCHLORIDE
     Dates: start: 20200524, end: 20200528

REACTIONS (3)
  - Acute myocardial infarction [None]
  - Blood creatinine increased [None]
  - Acute kidney injury [None]

NARRATIVE: CASE EVENT DATE: 20200524
